FAERS Safety Report 6196979-0 (Version None)
Quarter: 2009Q2

REPORT INFORMATION
  Report Type: 
  Country: None (occurrence: None)
  Receive Date: 20090520
  Receipt Date: 20090513
  Transmission Date: 20091009
  Serious: Yes (Other)
  Sender: FDA-Public Use
  Company Number: PHHY2009NO11992

PATIENT
  Sex: Female

DRUGS (2)
  1. LEPONEX [Suspect]
     Indication: SCHIZOPHRENIA
     Dosage: 600 MG/DAY
     Dates: start: 20080911
  2. ORFIRIL [Concomitant]
     Indication: HYPOMANIA
     Dosage: UNK
     Dates: start: 20090401

REACTIONS (4)
  - CONDITION AGGRAVATED [None]
  - FALL [None]
  - MUSCULAR WEAKNESS [None]
  - SPEECH DISORDER [None]
